FAERS Safety Report 6279246-6 (Version None)
Quarter: 2009Q3

REPORT INFORMATION
  Report Type: 
  Country: None (occurrence: None)
  Receive Date: 20090720
  Receipt Date: 20090720
  Transmission Date: 20100115
  Serious: No
  Sender: FDA-Public Use
  Company Number: None

PATIENT
  Sex: Female
  Weight: 78.4723 kg

DRUGS (3)
  1. DROSPIRENONE AND ETHINYL ESTRADIOL [Suspect]
     Indication: DYSMENORRHOEA
     Dosage: 1 TAB PER DAY PO
     Route: 048
     Dates: start: 20090713, end: 20090717
  2. DROSPIRENONE AND ETHINYL ESTRADIOL [Suspect]
     Indication: MENORRHAGIA
     Dosage: 1 TAB PER DAY PO
     Route: 048
     Dates: start: 20090713, end: 20090717
  3. DROSPIRENONE AND ETHINYL ESTRADIOL [Suspect]
     Indication: PREMENSTRUAL SYNDROME
     Dosage: 1 TAB PER DAY PO
     Route: 048
     Dates: start: 20090713, end: 20090717

REACTIONS (4)
  - FATIGUE [None]
  - HEADACHE [None]
  - IMPAIRED WORK ABILITY [None]
  - PHOTOPHOBIA [None]
